FAERS Safety Report 25842830 (Version 1)
Quarter: 2025Q3

REPORT INFORMATION
  Report Type: Spontaneous
  Country: GB (occurrence: GB)
  Receive Date: 20250924
  Receipt Date: 20250924
  Transmission Date: 20251020
  Serious: Yes (Congenital Anomaly)
  Sender: ELI LILLY AND COMPANY
  Company Number: None

PATIENT

DRUGS (8)
  1. MOUNJARO [Suspect]
     Active Substance: TIRZEPATIDE
     Indication: Product used for unknown indication
     Dosage: 15 MG, WEEKLY (1/W)
     Route: 064
     Dates: start: 202505, end: 20250603
  2. MOUNJARO [Suspect]
     Active Substance: TIRZEPATIDE
     Indication: Product used for unknown indication
     Dosage: 15 MG, WEEKLY (1/W)
     Route: 064
     Dates: start: 202505, end: 20250603
  3. MOUNJARO [Suspect]
     Active Substance: TIRZEPATIDE
     Indication: Product used for unknown indication
     Dosage: 15 MG, WEEKLY (1/W)
     Route: 064
     Dates: start: 202505, end: 20250603
  4. MOUNJARO [Suspect]
     Active Substance: TIRZEPATIDE
     Indication: Product used for unknown indication
     Dosage: 15 MG, WEEKLY (1/W)
     Route: 064
     Dates: start: 202505, end: 20250603
  5. FOLIC ACID [Concomitant]
     Active Substance: FOLIC ACID
     Indication: Vitamin supplementation
     Route: 065
  6. FOLIC ACID [Concomitant]
     Active Substance: FOLIC ACID
     Indication: Vitamin supplementation
     Route: 065
  7. RAMIPRIL [Concomitant]
     Active Substance: RAMIPRIL
     Indication: Hypertension
     Route: 065
  8. RAMIPRIL [Concomitant]
     Active Substance: RAMIPRIL
     Indication: Hypertension
     Route: 065

REACTIONS (2)
  - Foetal growth restriction [Unknown]
  - Foetal exposure during pregnancy [Unknown]
